FAERS Safety Report 21885233 (Version 1)
Quarter: 2023Q1

REPORT INFORMATION
  Report Type: Spontaneous
  Country: US (occurrence: US)
  Receive Date: 20230119
  Receipt Date: 20230119
  Transmission Date: 20230418
  Serious: Yes (Other)
  Sender: FDA-Public Use
  Company Number: US-BAYER-2023A004311

PATIENT
  Age: 12 Year
  Sex: Male
  Weight: 40.6 kg

DRUGS (2)
  1. ASPIRIN [Interacting]
     Active Substance: ASPIRIN
  2. CLOPIDOGREL [Interacting]
     Active Substance: CLOPIDOGREL BISULFATE

REACTIONS (5)
  - Pharyngeal haemorrhage [None]
  - Renal impairment [None]
  - Labelled drug-drug interaction medication error [None]
  - Off label use [None]
  - Contraindicated product administered [None]
